FAERS Safety Report 15906751 (Version 1)
Quarter: 2019Q1

REPORT INFORMATION
  Report Type: Spontaneous
  Country: US (occurrence: US)
  Receive Date: 20190204
  Receipt Date: 20190204
  Transmission Date: 20190417
  Serious: Yes (Death)
  Sender: FDA-Public Use
  Company Number: None

PATIENT
  Age: 66 Year
  Sex: Male

DRUGS (6)
  1. ENALAPRIL [Concomitant]
     Active Substance: ENALAPRIL
     Dates: start: 20170913, end: 20190124
  2. MEGESTROL SUSP [Concomitant]
     Dates: start: 20181207, end: 20190124
  3. HUMIRA [Suspect]
     Active Substance: ADALIMUMAB
     Indication: COLITIS ULCERATIVE
     Dosage: ?          OTHER FREQUENCY:EVERY OTHER WEEK;?
     Route: 058
     Dates: start: 20180112, end: 20190124
  4. ELIQUIS [Concomitant]
     Active Substance: APIXABAN
     Dates: start: 20170613, end: 20190124
  5. ROSUVASTATIN. [Concomitant]
     Active Substance: ROSUVASTATIN
     Dates: start: 20171208, end: 20190124
  6. AMLODIPINE [Concomitant]
     Active Substance: AMLODIPINE BESYLATE
     Dates: start: 20171113, end: 20190124

REACTIONS (1)
  - Death [None]

NARRATIVE: CASE EVENT DATE: 20190124
